FAERS Safety Report 16466245 (Version 1)
Quarter: 2019Q2

REPORT INFORMATION
  Report Type: Spontaneous
  Country: US (occurrence: US)
  Receive Date: 20190621
  Receipt Date: 20190621
  Transmission Date: 20190711
  Serious: No
  Sender: FDA-Public Use
  Company Number: US-ACORDA-ACO_158308_2019

PATIENT
  Sex: Male

DRUGS (1)
  1. INBRIJA [Suspect]
     Active Substance: LEVODOPA
     Indication: PRODUCT USED FOR UNKNOWN INDICATION
     Dosage: 2 CAPSULES, 1 AT A TIME
     Dates: start: 20190418

REACTIONS (9)
  - Pallor [Recovered/Resolved]
  - Cough [Unknown]
  - Dry throat [Unknown]
  - Oropharyngeal pain [Unknown]
  - Fatigue [Unknown]
  - Pulmonary congestion [Not Recovered/Not Resolved]
  - Wrong technique in product usage process [Unknown]
  - Productive cough [Unknown]
  - Foreign body in respiratory tract [Unknown]

NARRATIVE: CASE EVENT DATE: 20190418
